FAERS Safety Report 7810050-0 (Version None)
Quarter: 2011Q4

REPORT INFORMATION
  Report Type: 
  Country: None (occurrence: None)
  Receive Date: 20111012
  Receipt Date: 20110825
  Transmission Date: 20120403
  Serious: No
  Sender: FDA-Public Use
  Company Number: US-GLAXOSMITHKLINE-A0942297A

PATIENT
  Age: 68 Year
  Sex: Male

DRUGS (4)
  1. JALYN [Suspect]
     Indication: PRODUCT USED FOR UNKNOWN INDICATION
     Route: 048
     Dates: start: 20100901, end: 20101201
  2. AVODART [Suspect]
     Route: 048
     Dates: start: 20101201, end: 20110701
  3. LEVOTHYROXINE SODIUM [Concomitant]
  4. RITUXAN [Concomitant]

REACTIONS (4)
  - BREAST TENDERNESS [None]
  - GYNAECOMASTIA [None]
  - ERECTILE DYSFUNCTION [None]
  - MUSCULAR WEAKNESS [None]
